FAERS Safety Report 4848156-0 (Version None)
Quarter: 2005Q4

REPORT INFORMATION
  Report Type: 
  Country: None (occurrence: None)
  Receive Date: 20051208
  Receipt Date: 20051128
  Transmission Date: 20060501
  Serious: Yes (Other)
  Sender: FDA-Public Use
  Company Number: FR-JNJFOC-20040102292

PATIENT
  Age: 29 Year
  Sex: Female
  Weight: 50 kg

DRUGS (2)
  1. REMICADE [Suspect]
     Route: 042
  2. REMICADE [Suspect]
     Indication: CROHN'S DISEASE
     Route: 042

REACTIONS (8)
  - ANAPHYLACTIC SHOCK [None]
  - BACK PAIN [None]
  - DYSPNOEA [None]
  - ERYTHEMA [None]
  - HYPOTENSION [None]
  - INFUSION RELATED REACTION [None]
  - MALAISE [None]
  - TACHYCARDIA [None]
